FAERS Safety Report 9332132 (Version 2)
Quarter: 2013Q4

REPORT INFORMATION
  Report Type: Report from Study
  Country: CZ (occurrence: CZ)
  Receive Date: 20130606
  Receipt Date: 20131206
  Transmission Date: 20140711
  Serious: Yes (Other)
  Sender: FDA-Public Use
  Company Number: CZ-ROCHE-1232918

PATIENT
  Age: 79 Year
  Sex: Male

DRUGS (6)
  1. RANIBIZUMAB [Suspect]
     Indication: AGE-RELATED MACULAR DEGENERATION
     Route: 050
     Dates: start: 20120625
  2. PRESTARIUM (CZECH REPUBLIC) [Concomitant]
  3. MILURIT [Concomitant]
  4. VISTAGAN [Concomitant]
  5. CONCOR [Concomitant]
  6. CELEBREX [Concomitant]

REACTIONS (1)
  - Retinal haemorrhage [Recovered/Resolved with Sequelae]
